FAERS Safety Report 20557052 (Version 1)
Quarter: 2022Q1

REPORT INFORMATION
  Report Type: Spontaneous
  Country: CN (occurrence: CN)
  Receive Date: 20220307
  Receipt Date: 20220307
  Transmission Date: 20220423
  Serious: Yes (Other)
  Sender: FDA-Public Use
  Company Number: CN-ABBVIE-22K-035-4301369-00

PATIENT
  Age: 46 Year
  Sex: Male
  Weight: 70 kg

DRUGS (4)
  1. VALPROATE SODIUM [Suspect]
     Active Substance: VALPROATE SODIUM
     Indication: Cerebral haemorrhage
     Route: 048
     Dates: start: 20191003, end: 20191022
  2. EDARAVONE [Suspect]
     Active Substance: EDARAVONE
     Indication: Cerebral haemorrhage
     Route: 041
     Dates: start: 20191018, end: 20191020
  3. LEVOFLOXACIN LACTATE [Concomitant]
     Active Substance: LEVOFLOXACIN LACTATE
     Indication: Cerebral haemorrhage
     Route: 050
     Dates: start: 20191014, end: 20191020
  4. DEPROTEINISED CALF BLOOD SERUM INJECTION [Concomitant]
     Indication: Cerebral haemorrhage
     Route: 050
     Dates: start: 20191014, end: 20191018

REACTIONS (3)
  - White blood cell count decreased [Recovering/Resolving]
  - Granulocytopenia [Recovering/Resolving]
  - Rash [Recovering/Resolving]
